FAERS Safety Report 6524690-2 (Version None)
Quarter: 2009Q4

REPORT INFORMATION
  Report Type: 
  Country: None (occurrence: None)
  Receive Date: 20091231
  Receipt Date: 20091231
  Transmission Date: 20100525
  Serious: Yes (Hospitalization)
  Sender: FDA-Public Use
  Company Number: None

PATIENT
  Sex: Female
  Weight: 119 kg

DRUGS (2)
  1. FLUOROURACIL [Suspect]
     Indication: DIARRHOEA
     Dosage: 3577.2 MG
     Dates: end: 20091224
  2. ELOXATIN [Suspect]
     Dosage: 238.5 MG
     Dates: end: 20091221

REACTIONS (3)
  - DIARRHOEA [None]
  - NAUSEA [None]
  - NO THERAPEUTIC RESPONSE [None]
